FAERS Safety Report 23668764 (Version 2)
Quarter: 2024Q2

REPORT INFORMATION
  Report Type: Spontaneous
  Country: SG (occurrence: SG)
  Receive Date: 20240325
  Receipt Date: 20240402
  Transmission Date: 20240716
  Serious: Yes (Other)
  Sender: FDA-Public Use
  Company Number: SG-MYLANLABS-2024M1026612

PATIENT
  Age: 61 Year
  Sex: Female

DRUGS (3)
  1. GABAPENTIN [Suspect]
     Active Substance: GABAPENTIN
     Indication: Restless legs syndrome
     Dosage: 100 MILLIGRAM, QD (PM)
     Route: 048
  2. GABAPENTIN [Suspect]
     Active Substance: GABAPENTIN
     Indication: Neuralgia
  3. GABAPENTIN [Suspect]
     Active Substance: GABAPENTIN
     Indication: Diabetic neuropathy

REACTIONS (3)
  - Dyskinesia [Recovered/Resolved]
  - Chills [Recovered/Resolved]
  - Tremor [Recovered/Resolved]

NARRATIVE: CASE EVENT DATE: 20240223
